FAERS Safety Report 7377249 (Version 3)
Quarter: 2013Q1

REPORT INFORMATION
  Report Type: Spontaneous
  Country: ES (occurrence: ES)
  Receive Date: 20100505
  Receipt Date: 20130124
  Transmission Date: 20140127
  Serious: Yes (Other)
  Sender: FDA-Public Use
  Company Number: ES-JNJFOC-20100407709

PATIENT
  Age: 21 Year
  Sex: Female
  Weight: 97 kg

DRUGS (1)
  1. STELARA [Suspect]
     Indication: PSORIASIS
     Route: 058
     Dates: start: 201002

REACTIONS (1)
  - Pustular psoriasis [Recovered/Resolved with Sequelae]
